FAERS Safety Report 6700252-9 (Version None)
Quarter: 2010Q2

REPORT INFORMATION
  Report Type: 
  Country: None (occurrence: None)
  Receive Date: 20100428
  Receipt Date: 20100416
  Transmission Date: 20101027
  Serious: Yes (Other)
  Sender: FDA-Public Use
  Company Number: US-PFIZER INC-2010049251

PATIENT
  Sex: Male

DRUGS (2)
  1. ZITHROMAX [Suspect]
     Indication: BRONCHITIS
     Dosage: 500 MG, 1X/DAY
     Route: 048
     Dates: start: 20100408, end: 20100408
  2. ZITHROMAX [Suspect]
     Dosage: 250 MG, 2X/DAY
     Route: 048
     Dates: start: 20100409, end: 20100412

REACTIONS (1)
  - HAEMATURIA [None]
